FAERS Safety Report 21051332 (Version 1)
Quarter: 2022Q3

REPORT INFORMATION
  Report Type: Spontaneous
  Country: CA (occurrence: CA)
  Receive Date: 20220707
  Receipt Date: 20220707
  Transmission Date: 20221026
  Serious: Yes (Hospitalization, Other)
  Sender: FDA-Public Use
  Company Number: CA-JNJFOC-20220701191

PATIENT
  Age: 59 Year
  Sex: Female
  Weight: 86 kg

DRUGS (4)
  1. REMICADE [Suspect]
     Active Substance: INFLIXIMAB
     Indication: Crohn^s disease
     Route: 041
  2. FUROSEMIDE [Suspect]
     Active Substance: FUROSEMIDE
     Indication: Cardiac failure congestive
     Route: 048
  3. SPIRONOLACTONE [Suspect]
     Active Substance: SPIRONOLACTONE
     Indication: Cardiac failure congestive
     Route: 048
  4. SACUBITRIL [Suspect]
     Active Substance: SACUBITRIL
     Indication: Cardiac failure congestive
     Route: 048

REACTIONS (8)
  - Balance disorder [Unknown]
  - Rheumatoid arthritis [Unknown]
  - Fall [Unknown]
  - Contusion [Unknown]
  - Cardiac failure congestive [Unknown]
  - Pneumonia [Unknown]
  - Dizziness [Unknown]
  - Pain [Unknown]
